FAERS Safety Report 25390963 (Version 2)
Quarter: 2025Q2

REPORT INFORMATION
  Report Type: Report from Study
  Country: TR (occurrence: TR)
  Receive Date: 20250603
  Receipt Date: 20250625
  Transmission Date: 20250716
  Serious: Yes (Hospitalization)
  Sender: MERCK SHARP & DOHME LLC
  Company Number: TR-ASTRAZENECA-202409GLO010787TR

PATIENT
  Age: 45 Year
  Sex: Female
  Weight: 52 kg

DRUGS (15)
  1. PEMBROLIZUMAB [Suspect]
     Active Substance: PEMBROLIZUMAB
     Indication: Triple negative breast cancer
     Route: 050
     Dates: start: 20240801, end: 20241128
  2. FEXADYNE [Concomitant]
     Indication: Dermatitis
     Route: 050
     Dates: start: 20240812
  3. URSOVEF [Concomitant]
     Indication: Aspartate aminotransferase increased
     Dosage: 750 MG, QD
     Route: 050
     Dates: start: 20240906
  4. DUPHALAC [Concomitant]
     Active Substance: LACTULOSE
     Indication: Constipation
     Dosage: 670 MG, QD
     Route: 050
     Dates: start: 20240822
  5. GADEXON [Concomitant]
     Indication: Chemotherapy side effect prophylaxis
     Route: 050
     Dates: start: 20240801
  6. GADEXON [Concomitant]
     Indication: Chemotherapy side effect prophylaxis
     Route: 050
     Dates: start: 20240801
  7. SYSTANE LUBRICANT [Concomitant]
     Active Substance: POLYETHYLENE GLYCOL 400\PROPYLENE GLYCOL
     Indication: Dry eye
     Dosage: 15 MILLILITER, TID
     Route: 050
  8. PAROL [Concomitant]
     Active Substance: ACETAMINOPHEN
     Indication: Adverse event
     Route: 050
     Dates: start: 20240801
  9. INFENIL [Concomitant]
     Indication: Chemotherapy side effect prophylaxis
     Route: 050
     Dates: start: 20240801
  10. GRANSET [Concomitant]
     Indication: Chemotherapy side effect prophylaxis
     Route: 050
     Dates: start: 20240801
  11. CARBOPLATIN [Suspect]
     Active Substance: CARBOPLATIN
     Indication: Triple negative breast cancer
     Route: 042
     Dates: start: 20240801, end: 20241017
  12. PACLITAXEL [Suspect]
     Active Substance: PACLITAXEL
     Indication: Triple negative breast cancer
     Route: 042
     Dates: start: 20240801, end: 20240829
  13. PACLITAXEL [Suspect]
     Active Substance: PACLITAXEL
     Indication: Triple negative breast cancer
     Route: 042
     Dates: start: 20240909, end: 20241017
  14. DOXORUBICIN [Suspect]
     Active Substance: DOXORUBICIN
     Indication: Triple negative breast cancer
     Route: 042
     Dates: start: 20241031, end: 20241128
  15. CYCLOPHOSPHAMIDE [Suspect]
     Active Substance: CYCLOPHOSPHAMIDE
     Indication: Triple negative breast cancer
     Route: 042
     Dates: start: 20241031, end: 20241128

REACTIONS (1)
  - Myalgia [Recovered/Resolved]

NARRATIVE: CASE EVENT DATE: 20240926
